FAERS Safety Report 9164464 (Version 1)
Quarter: 2013Q1

REPORT INFORMATION
  Report Type: Spontaneous
  Country: DK (occurrence: None)
  Receive Date: 20130221
  Receipt Date: 20130221
  Transmission Date: 20140127
  Serious: Yes (Hospitalization, Disabling)
  Sender: FDA-Public Use
  Company Number: 2013MA001238

PATIENT
  Age: 18 Year
  Sex: 0

DRUGS (5)
  1. FLUOXETINE ORAL SOLUTION USP, 20MG/5ML (ALPHARMA) (FLUOXETINE) [Suspect]
     Indication: DEPRESSION
     Route: 048
     Dates: start: 20111005, end: 20121220
  2. AMITRIPTYLINE (AMITRIPTYLINE) [Suspect]
     Indication: HEADACHE
     Route: 048
     Dates: start: 20120112, end: 20120215
  3. NORTRIPTYLINE (NORTRIPTYLINE) [Suspect]
     Indication: HEADACHE
     Route: 048
     Dates: start: 20120215, end: 20121122
  4. LANSOPRAZOLE [Concomitant]
  5. LAXIDO [Concomitant]

REACTIONS (4)
  - Dizziness [None]
  - Muscular weakness [None]
  - Gastrooesophageal reflux disease [None]
  - Syncope [None]
